FAERS Safety Report 10881221 (Version 1)
Quarter: 2015Q1

REPORT INFORMATION
  Report Type: Spontaneous
  Country: IT (occurrence: None)
  Receive Date: 20150225
  Receipt Date: 20150225
  Transmission Date: 20150721
  Serious: Yes (Other)
  Sender: FDA-Public Use
  Company Number: 2750361

PATIENT
  Age: 65 Year
  Sex: Female

DRUGS (4)
  1. OXALIPLATIN. [Suspect]
     Active Substance: OXALIPLATIN
     Indication: ADENOCARCINOMA OF COLON
     Dosage: CYCLICAL?(NOT OTHERWISE SPECIFIED)
     Route: 042
     Dates: start: 20131001, end: 20131029
  2. FLUOROURACIL. [Concomitant]
     Active Substance: FLUOROURACIL
  3. BEVACIZUMAB [Concomitant]
     Active Substance: BEVACIZUMAB
  4. FOLINIC ACID [Concomitant]
     Active Substance: LEUCOVORIN

REACTIONS (1)
  - Laryngospasm [None]

NARRATIVE: CASE EVENT DATE: 20131029
